FAERS Safety Report 7393003-9 (Version None)
Quarter: 2011Q2

REPORT INFORMATION
  Report Type: 
  Country: None (occurrence: None)
  Receive Date: 20110404
  Receipt Date: 20110324
  Transmission Date: 20111010
  Serious: Yes (Hospitalization)
  Sender: FDA-Public Use
  Company Number: SE-BAXTER-2011BH007677

PATIENT
  Sex: Male
  Weight: 77 kg

DRUGS (7)
  1. GAMMAGARD LIQUID [Suspect]
     Indication: OFF LABEL USE
     Route: 042
     Dates: start: 20090824, end: 20090824
  2. GAMMAGARD LIQUID [Suspect]
     Route: 065
     Dates: start: 20090306
  3. GAMMAGARD LIQUID [Suspect]
     Route: 065
     Dates: start: 20090306
  4. GAMMAGARD LIQUID [Suspect]
     Route: 042
     Dates: start: 20090824, end: 20090824
  5. METOPROLOL TARTRATE [Concomitant]
     Indication: HYPERTONIA
  6. GAMMAGARD LIQUID [Suspect]
     Indication: MULTIFOCAL MOTOR NEUROPATHY
     Route: 042
     Dates: start: 20090824, end: 20090824
  7. GAMMAGARD LIQUID [Suspect]
     Route: 042
     Dates: start: 20090824, end: 20090824

REACTIONS (1)
  - FACE OEDEMA [None]
